FAERS Safety Report 7504593-7 (Version None)
Quarter: 2011Q2

REPORT INFORMATION
  Report Type: 
  Country: None (occurrence: None)
  Receive Date: 20110525
  Receipt Date: 20110518
  Transmission Date: 20111010
  Serious: Yes (Other)
  Sender: FDA-Public Use
  Company Number: US-BAXTER-2011BH016668

PATIENT
  Age: 11 Year
  Sex: Male
  Weight: 35 kg

DRUGS (8)
  1. PROPRANOLOL [Concomitant]
     Indication: LONG QT SYNDROME
     Route: 065
  2. ANTICHOLINESTERASE [Suspect]
     Indication: ANAESTHESIA REVERSAL
     Route: 065
  3. PANCURONIUM BROMIDE [Concomitant]
     Indication: GENERAL ANAESTHESIA
     Route: 065
  4. ANTICHOLINERGIC [Suspect]
     Indication: ANAESTHESIA REVERSAL
     Route: 065
  5. PENTOTHAL [Concomitant]
     Indication: GENERAL ANAESTHESIA
     Route: 065
  6. PROPOFOL [Concomitant]
     Indication: GENERAL ANAESTHESIA
     Route: 065
  7. ONDANSERTRON HYDROCHLORIDE [Suspect]
     Indication: ANTIEMETIC SUPPORTIVE CARE
     Route: 065
  8. FORANE [Suspect]
     Indication: GENERAL ANAESTHESIA
     Route: 055

REACTIONS (1)
  - TORSADE DE POINTES [None]
